FAERS Safety Report 18594220 (Version 2)
Quarter: 2021Q4

REPORT INFORMATION
  Report Type: Spontaneous
  Country: US (occurrence: US)
  Receive Date: 20201209
  Receipt Date: 20211102
  Transmission Date: 20220303
  Serious: No
  Sender: FDA-Public Use
  Company Number: US-PFIZER INC-2020478415

PATIENT
  Age: 14 Year
  Sex: Female
  Weight: 47.63 kg

DRUGS (1)
  1. GENOTROPIN [Suspect]
     Active Substance: SOMATROPIN
     Indication: Blood growth hormone
     Dosage: UNK UNK, 1X/DAY

REACTIONS (2)
  - Drug dose omission by device [Unknown]
  - Device power source issue [Unknown]
